FAERS Safety Report 18272280 (Version 2)
Quarter: 2020Q3

REPORT INFORMATION
  Report Type: Spontaneous
  Country: DE (occurrence: DE)
  Receive Date: 20200916
  Receipt Date: 20200922
  Transmission Date: 20201103
  Serious: Yes (Other)
  Sender: FDA-Public Use
  Company Number: DE-ACCORD-201063

PATIENT
  Age: 18 Year
  Sex: Male

DRUGS (5)
  1. METHOTREXATE. [Suspect]
     Active Substance: METHOTREXATE
     Indication: OSTEOSARCOMA
     Dosage: HIGH?DOSE METHOTREXATE, IN WEEK 4 AND 5, TOTAL 12 INFUSIONS OVER 4 HOURS
  2. PIPERACILLIN/TAZOBACTAM [Interacting]
     Active Substance: PIPERACILLIN SODIUM\TAZOBACTAM SODIUM
     Indication: PRODUCT USED FOR UNKNOWN INDICATION
  3. FOLINIC ACID [Concomitant]
     Active Substance: LEUCOVORIN
  4. DOXORUBICIN [Concomitant]
     Active Substance: DOXORUBICIN
  5. CISPLATIN. [Concomitant]
     Active Substance: CISPLATIN

REACTIONS (5)
  - Neurotoxicity [Recovered/Resolved]
  - Drug interaction [Unknown]
  - Renal failure [Recovered/Resolved]
  - Myelopathy [Unknown]
  - Drug level decreased [Recovering/Resolving]
